FAERS Safety Report 8598866-7 (Version None)
Quarter: 2012Q3

REPORT INFORMATION
  Report Type: 
  Country: None (occurrence: None)
  Receive Date: 20120816
  Receipt Date: 20120810
  Transmission Date: 20120928
  Serious: Yes (Hospitalization)
  Sender: FDA-Public Use
  Company Number: CA-GLAXOSMITHKLINE-A0989005A

PATIENT
  Sex: Male
  Weight: 108.8 kg

DRUGS (12)
  1. PROBIOTIC [Concomitant]
     Indication: DIARRHOEA
     Dosage: 1TAB PER DAY
     Route: 048
     Dates: start: 20120524, end: 20120528
  2. OFATUMUMAB [Suspect]
     Indication: CHRONIC LYMPHOCYTIC LEUKAEMIA
     Route: 042
     Dates: start: 20120614
  3. PANTALOC [Concomitant]
     Indication: GASTROOESOPHAGEAL REFLUX DISEASE
     Dosage: 20MG PER DAY
     Route: 048
     Dates: start: 20080101
  4. ALLOPURINOL [Concomitant]
     Indication: PROPHYLAXIS
     Dosage: 300MG PER DAY
     Route: 048
     Dates: start: 20120601
  5. GSK2110183 [Suspect]
     Indication: CHRONIC LYMPHOCYTIC LEUKAEMIA
     Dosage: 125MG PER DAY
     Route: 048
     Dates: start: 20120507
  6. MORPHINE [Concomitant]
     Indication: PAIN
     Route: 048
     Dates: start: 20120315
  7. IBUPROFEN [Concomitant]
     Indication: ABDOMINAL PAIN
     Dosage: 400MG AS REQUIRED
     Route: 048
     Dates: start: 20120508
  8. BENADRYL [Concomitant]
     Indication: INFUSION RELATED REACTION
     Dates: start: 20120614
  9. CLOTRIMAZOLE [Concomitant]
     Indication: RASH
     Route: 061
     Dates: start: 20120629, end: 20120711
  10. GAVISCON [Concomitant]
     Indication: DYSPEPSIA
     Dosage: 6TAB TWICE PER DAY
     Route: 048
     Dates: start: 20120801, end: 20120801
  11. TYLENOL [Concomitant]
     Route: 048
     Dates: start: 19880101
  12. RANITIDINE [Concomitant]
     Indication: GASTROOESOPHAGEAL REFLUX DISEASE
     Dosage: 150MG AS REQUIRED
     Route: 048
     Dates: start: 20120619

REACTIONS (1)
  - FEBRILE NEUTROPENIA [None]
